FAERS Safety Report 5956512-2 (Version None)
Quarter: 2008Q4

REPORT INFORMATION
  Report Type: 
  Country: None (occurrence: None)
  Receive Date: 20081118
  Receipt Date: 20081110
  Transmission Date: 20090506
  Serious: Yes (Disabling, Other)
  Sender: FDA-Public Use
  Company Number: B0536942A

PATIENT
  Age: 37 Year
  Sex: Male
  Weight: 95.3 kg

DRUGS (4)
  1. FLOLAN [Suspect]
     Route: 042
     Dates: start: 20080521, end: 20080525
  2. HYDROXYCHLOROQUINE SULFATE [Concomitant]
     Dosage: 200MG TWICE PER DAY
     Route: 048
     Dates: end: 20080716
  3. CO-DYDRAMOL [Concomitant]
     Indication: GROIN PAIN
     Route: 048
     Dates: start: 20080211
  4. LOSARTAN POTASSIUM [Concomitant]
     Indication: HYPERTENSION
     Dosage: 25MG VARIABLE DOSE
     Route: 065
     Dates: start: 20080601

REACTIONS (4)
  - BLOOD PRESSURE DECREASED [None]
  - EMOTIONAL DISORDER [None]
  - GENERAL PHYSICAL HEALTH DETERIORATION [None]
  - TEMPERATURE REGULATION DISORDER [None]
